FAERS Safety Report 16082771 (Version 1)
Quarter: 2019Q1

REPORT INFORMATION
  Report Type: Report from Study
  Country: GB (occurrence: GB)
  Receive Date: 20190318
  Receipt Date: 20190318
  Transmission Date: 20190418
  Serious: Yes (Other)
  Sender: FDA-Public Use
  Company Number: GB-ROCHE-1201035

PATIENT

DRUGS (4)
  1. ERIBULIN MESILATE [Suspect]
     Active Substance: ERIBULIN
     Indication: BREAST CANCER
     Dosage: DOSE: 0.7, 1.1 OR 1.4 MG/M2: DAY 1 AND 8 IN 21 DAY CYCLE
     Route: 042
  2. CAPECITABINE. [Suspect]
     Active Substance: CAPECITABINE
     Indication: BREAST CANCER
  3. ERIBULIN MESILATE [Suspect]
     Active Substance: ERIBULIN
     Indication: BREAST CANCER METASTATIC
     Dosage: DOSE: 1.2, 1.6 OR 2.0 MG/M2:  ON DAY 1 OF A 21-DAY CYCLE
     Route: 042
  4. CAPECITABINE. [Suspect]
     Active Substance: CAPECITABINE
     Indication: BREAST CANCER METASTATIC
     Dosage: DAYS 1-14 OF A 21-DAY CYCLE
     Route: 048

REACTIONS (20)
  - Diarrhoea [Unknown]
  - Stomatitis [Unknown]
  - Lethargy [Unknown]
  - Palmar-plantar erythrodysaesthesia syndrome [Unknown]
  - Asthenia [Unknown]
  - Neutropenic sepsis [Unknown]
  - Deep vein thrombosis [Unknown]
  - Peripheral sensory neuropathy [Unknown]
  - Alanine aminotransferase increased [Unknown]
  - Neutropenia [Unknown]
  - Fatigue [Unknown]
  - Nausea [Unknown]
  - Abdominal pain [Unknown]
  - Febrile neutropenia [Unknown]
  - Neuropathy peripheral [Unknown]
  - Arthralgia [Unknown]
  - Electrocardiogram QT prolonged [Unknown]
  - Leukopenia [Unknown]
  - Pyrexia [Unknown]
  - Pulmonary embolism [Unknown]
